FAERS Safety Report 8760118 (Version 1)
Quarter: 2012Q4

REPORT INFORMATION
  Report Type: 
  Country: US (occurrence: US)
  Receive Date: 20120829
  Receipt Date: 20120829
  Transmission Date: 20130627
  Serious: Yes (Hospitalization)
  Sender: FDA-Public Use
  Company Number: US-B.I. PHARMACEUTICALS,INC./RIDGEFIELD-2012-BP-20594BP

PATIENT
  Age: 87 None
  Sex: Female

DRUGS (9)
  1. PRADAXA [Suspect]
     Indication: CEREBROVASCULAR ACCIDENT PROPHYLAXIS
     Dosage: 300 mg
     Route: 048
     Dates: end: 20120822
  2. PRADAXA [Suspect]
     Indication: ATRIAL FIBRILLATION
  3. ENALAPRIL [Concomitant]
     Indication: BLOOD PRESSURE
     Dosage: 5 mg
  4. DIGOXIN [Concomitant]
     Indication: ATRIAL FIBRILLATION
  5. COREG [Concomitant]
     Indication: BLOOD PRESSURE
     Dosage: 12.5 mg
  6. PAXIL [Concomitant]
     Dosage: 10 mg
  7. FUROSEMIDE [Concomitant]
     Indication: BLOOD PRESSURE
     Dosage: 20 mg
  8. MORPHINE [Concomitant]
     Indication: PROCEDURAL PAIN
  9. ZOFRAN [Concomitant]
     Indication: PROCEDURAL NAUSEA

REACTIONS (2)
  - Oral pain [Not Recovered/Not Resolved]
  - Incorrect route of drug administration [Unknown]
